FAERS Safety Report 4438137-3 (Version None)
Quarter: 2004Q3

REPORT INFORMATION
  Report Type: 
  Country: None (occurrence: None)
  Receive Date: 20040831
  Receipt Date: 20040526
  Transmission Date: 20050211
  Serious: No
  Sender: FDA-Public Use
  Company Number: US-GLAXOSMITHKLINE-A0512534A

PATIENT
  Age: 34 Year
  Sex: Male

DRUGS (3)
  1. WELLBUTRIN XL [Suspect]
     Indication: DEPRESSION
     Dosage: 300MG PER DAY
     Route: 048
     Dates: start: 20040513, end: 20040526
  2. DEPO-MEDROL [Concomitant]
     Route: 030
  3. ZYRTEC [Concomitant]
     Route: 048

REACTIONS (1)
  - RASH GENERALISED [None]
